FAERS Safety Report 16130982 (Version 5)
Quarter: 2020Q4

REPORT INFORMATION
  Report Type: Spontaneous
  Country: US (occurrence: US)
  Receive Date: 20190328
  Receipt Date: 20201116
  Transmission Date: 20210113
  Serious: Yes (Other)
  Sender: FDA-Public Use
  Company Number: PHEH2019US012646

PATIENT
  Sex: Female

DRUGS (1)
  1. ENTRESTO [Suspect]
     Active Substance: SACUBITRIL\VALSARTAN
     Indication: PRODUCT USED FOR UNKNOWN INDICATION
     Dosage: UNK, (HIGHER MG)
     Route: 065

REACTIONS (4)
  - Vein disorder [Unknown]
  - Bone disorder [Unknown]
  - Gait disturbance [Unknown]
  - Muscle spasms [Unknown]
